FAERS Safety Report 25990230 (Version 2)
Quarter: 2025Q4

REPORT INFORMATION
  Report Type: Spontaneous
  Country: JP (occurrence: JP)
  Receive Date: 20251103
  Receipt Date: 20251229
  Transmission Date: 20260118
  Serious: Yes (Hospitalization)
  Sender: ABBVIE
  Company Number: JP-ABBVIE-6525764

PATIENT
  Age: 90 Year
  Sex: Female
  Weight: 45 kg

DRUGS (10)
  1. RINVOQ [Suspect]
     Active Substance: UPADACITINIB
     Indication: Giant cell arteritis
     Dosage: FORM STRENGTH 15 MG
     Route: 048
     Dates: start: 20250926, end: 20251021
  2. ALFACALCIDOL [Concomitant]
     Active Substance: ALFACALCIDOL
     Indication: Prophylaxis
     Dosage: 0.5 MICROGRAM
     Route: 048
     Dates: start: 20250905
  3. PREDNISOLONE [Suspect]
     Active Substance: PREDNISOLONE
     Indication: Giant cell arteritis
     Dosage: 15 MILLIGRAM
     Route: 048
     Dates: start: 202510
  4. PREDNISOLONE [Suspect]
     Active Substance: PREDNISOLONE
     Indication: Giant cell arteritis
     Dosage: 25 MILLIGRAM
     Route: 048
     Dates: start: 20250926, end: 20251009
  5. PREDNISOLONE [Suspect]
     Active Substance: PREDNISOLONE
     Indication: Giant cell arteritis
     Route: 048
  6. PREDNISOLONE [Suspect]
     Active Substance: PREDNISOLONE
     Indication: Giant cell arteritis
     Dosage: 10 MILLIGRAM
     Route: 048
     Dates: start: 202511
  7. PREDNISOLONE [Suspect]
     Active Substance: PREDNISOLONE
     Indication: Giant cell arteritis
     Dosage: 20 MILLIGRAM
     Route: 048
     Dates: start: 20251010, end: 20251023
  8. SULFAMETHOXAZOLE\TRIMETHOPRIM [Concomitant]
     Active Substance: SULFAMETHOXAZOLE\TRIMETHOPRIM
     Indication: Prophylaxis
     Dosage: 0.5 TABLET
     Route: 048
     Dates: start: 20250905
  9. RABEPRAZOLE SODIUM [Concomitant]
     Active Substance: RABEPRAZOLE SODIUM
     Indication: Prophylaxis
     Dosage: 10 MILLIGRAM
     Route: 048
  10. LEMBOREXANT [Concomitant]
     Active Substance: LEMBOREXANT
     Indication: Insomnia
     Dosage: 2.5 UNKNOWN
     Route: 048
     Dates: start: 20250911

REACTIONS (9)
  - Bronchopulmonary aspergillosis [Recovering/Resolving]
  - Renal cyst [Unknown]
  - Atypical mycobacterial infection [Unknown]
  - Liver disorder [Recovering/Resolving]
  - Dehydration [Unknown]
  - Cholelithiasis [Unknown]
  - Cytomegalovirus infection [Recovered/Resolved]
  - Influenza [Recovered/Resolved]
  - Immunosuppression [Unknown]

NARRATIVE: CASE EVENT DATE: 20250101
